FAERS Safety Report 4511724-X (Version None)
Quarter: 2004Q4

REPORT INFORMATION
  Report Type: 
  Country: None (occurrence: None)
  Receive Date: 20041129
  Receipt Date: 20041115
  Transmission Date: 20050328
  Serious: Yes (Life-Threatening, Hospitalization)
  Sender: FDA-Public Use
  Company Number: 200413495JP

PATIENT
  Age: 39 Year
  Sex: Male

DRUGS (2)
  1. KETEK [Suspect]
     Indication: TONSILLITIS
     Dosage: DOSE: UNK
     Route: 048
  2. VOLTAREN [Concomitant]
     Route: 048
     Dates: start: 20041102, end: 20041107

REACTIONS (3)
  - ACUTE MYELOID LEUKAEMIA [None]
  - BLOOD CREATININE INCREASED [None]
  - WHITE BLOOD CELL COUNT INCREASED [None]
